FAERS Safety Report 7206168-6 (Version None)
Quarter: 2011Q1

REPORT INFORMATION
  Report Type: 
  Country: None (occurrence: None)
  Receive Date: 20110103
  Receipt Date: 20101222
  Transmission Date: 20110831
  Serious: Yes (Life-Threatening, Hospitalization)
  Sender: FDA-Public Use
  Company Number: JP-SHIRE-SPV1-2010-02111

PATIENT
  Age: 59 Year
  Sex: Female

DRUGS (9)
  1. BENZALIN [Concomitant]
     Indication: INSOMNIA
     Dosage: 5 MG, UNKNOWN
     Route: 048
     Dates: start: 20070707
  2. ALEVIATIN                          /00017401/ [Concomitant]
     Indication: EPILEPSY
     Dosage: 200 MG, UNKNOWN
     Route: 048
     Dates: start: 20000601
  3. FOSRENOL [Suspect]
     Indication: HYPERPHOSPHATAEMIA
     Dosage: 500 MG, OTHER, TOTAL DAILY DOSE
     Route: 048
     Dates: start: 20091015, end: 20100930
  4. SHINLUCK [Concomitant]
     Indication: CONSTIPATION
     Dosage: 240 MG, UNKNOWN
     Route: 048
     Dates: start: 20050713, end: 20100930
  5. CALTAN [Concomitant]
     Indication: HYPERPHOSPHATAEMIA
     Dosage: 1000 MG, UNKNOWN
     Route: 048
     Dates: start: 20050528, end: 20100930
  6. YODEL [Concomitant]
     Indication: CONSTIPATION
     Dosage: 240 MG, UNKNOWN
     Route: 048
     Dates: start: 20050528, end: 20100930
  7. HALCION [Concomitant]
     Indication: INSOMNIA
     Dosage: 0.25 MG, UNKNOWN
     Route: 048
     Dates: start: 20070324
  8. ASPIRIN [Concomitant]
     Indication: INTRACRANIAL ANEURYSM
     Dosage: 100 MG, UNKNOWN
     Route: 048
     Dates: start: 20100218, end: 20100930
  9. VEGETAMIN B [Concomitant]
     Indication: INSOMNIA
     Dosage: 1 DF, UNKNOWN
     Route: 048
     Dates: start: 20050921

REACTIONS (4)
  - PERITONITIS [None]
  - ILEUS [None]
  - DIVERTICULAR PERFORATION [None]
  - ABDOMINAL ABSCESS [None]
